FAERS Safety Report 21564331 (Version 1)
Quarter: 2022Q4

REPORT INFORMATION
  Report Type: Spontaneous
  Country: IT (occurrence: IT)
  Receive Date: 20221108
  Receipt Date: 20221108
  Transmission Date: 20230113
  Serious: Yes (Other)
  Sender: FDA-Public Use
  Company Number: IT-MINISAL02-890371

PATIENT
  Age: 71 Year
  Sex: Female

DRUGS (3)
  1. CIPROFLOXACIN [Suspect]
     Active Substance: CIPROFLOXACIN
     Indication: Prophylaxis
     Dosage: 1 DOSAGE FORM
     Route: 048
  2. METRONIDAZOLE [Suspect]
     Active Substance: METRONIDAZOLE
     Indication: Prophylaxis
     Dosage: 1 DOSAGE FORM
     Route: 042
  3. DIOSMIN [Suspect]
     Active Substance: DIOSMIN
     Indication: Peripheral venous disease
     Dosage: 2 DOSAGE FORM
     Route: 048

REACTIONS (2)
  - Erythema [Recovering/Resolving]
  - Vertigo [Recovering/Resolving]

NARRATIVE: CASE EVENT DATE: 20220519
